FAERS Safety Report 12210262 (Version 2)
Quarter: 2016Q2

REPORT INFORMATION
  Report Type: Spontaneous
  Country: US (occurrence: US)
  Receive Date: 20160325
  Receipt Date: 20160407
  Transmission Date: 20160815
  Serious: Yes (Death, Hospitalization, Other)
  Sender: FDA-Public Use
  Company Number: US-ALKEM-001530

PATIENT
  Age: 45 Year
  Sex: Female

DRUGS (3)
  1. TACROLIMUS. [Suspect]
     Active Substance: TACROLIMUS
     Indication: RENAL TRANSPLANT
     Dosage: IMMUNOSUPPRESSION AFTER RENAL TRANSPLANT
  2. MYCOPHENOLIC ACID. [Suspect]
     Active Substance: MYCOPHENOLIC ACID
     Indication: RENAL TRANSPLANT
  3. PREDNISONE. [Suspect]
     Active Substance: PREDNISONE
     Indication: RENAL TRANSPLANT

REACTIONS (4)
  - Blastomycosis [Fatal]
  - Multiple organ dysfunction syndrome [Fatal]
  - Acute respiratory distress syndrome [Fatal]
  - Shock [Fatal]
